FAERS Safety Report 7154074-8 (Version None)
Quarter: 2010Q4

REPORT INFORMATION
  Report Type: 
  Country: None (occurrence: None)
  Receive Date: 20101124
  Receipt Date: 20101108
  Transmission Date: 20110411
  Serious: Yes (Other)
  Sender: FDA-Public Use
  Company Number: UTC-002149

PATIENT
  Age: 2 Year
  Sex: Female

DRUGS (3)
  1. REMODULIN [Suspect]
     Indication: PULMONARY ARTERIAL HYPERTENSION
     Dosage: 1 IN 1 MIN, SUBCUTANEOUS
     Route: 058
  2. BOSENTAN (BOSENTAN) [Concomitant]
  3. SILDENAFIL CITRATE [Concomitant]

REACTIONS (1)
  - OESOPHAGEAL VARICES HAEMORRHAGE [None]
